FAERS Safety Report 25900888 (Version 5)
Quarter: 2025Q4

REPORT INFORMATION
  Report Type: Spontaneous
  Country: EU (occurrence: EU)
  Receive Date: 20251009
  Receipt Date: 20251224
  Transmission Date: 20260118
  Serious: No
  Sender: PFIZER
  Company Number: EU-PFIZER INC-202500197527

PATIENT
  Sex: Female

DRUGS (1)
  1. GENOTROPIN [Suspect]
     Active Substance: SOMATROPIN
     Indication: Prader-Willi syndrome
     Dosage: 0.8 MG, 1X/DAY
     Route: 058
     Dates: start: 201011

REACTIONS (2)
  - Product deposit [Unknown]
  - Device breakage [Unknown]
